FAERS Safety Report 6137840-7 (Version None)
Quarter: 2009Q1

REPORT INFORMATION
  Report Type: 
  Country: None (occurrence: None)
  Receive Date: 20090331
  Receipt Date: 20090324
  Transmission Date: 20090719
  Serious: Yes (Death, Hospitalization)
  Sender: FDA-Public Use
  Company Number: IN-BAXTER-2009BH000257

PATIENT
  Age: 44 Year
  Sex: Male
  Weight: 57 kg

DRUGS (11)
  1. DIANEAL [Suspect]
     Indication: RENAL FAILURE CHRONIC
     Route: 033
     Dates: start: 20081201, end: 20081225
  2. DIANEAL [Suspect]
     Route: 033
     Dates: start: 20081201, end: 20081225
  3. DIANEAL [Suspect]
     Route: 033
     Dates: start: 20081201, end: 20081225
  4. DIANEAL [Suspect]
     Route: 033
     Dates: start: 20081201, end: 20081225
  5. DIANEAL [Suspect]
     Route: 033
     Dates: start: 20080701, end: 20081201
  6. AMLODAC [Concomitant]
     Indication: DRUG USE FOR UNKNOWN INDICATION
     Route: 065
  7. FRUSINEX [Concomitant]
     Indication: DRUG USE FOR UNKNOWN INDICATION
     Route: 065
  8. PHOSTAT [Concomitant]
     Indication: DRUG USE FOR UNKNOWN INDICATION
     Route: 065
  9. NEPHROCAPS [Concomitant]
     Indication: DRUG USE FOR UNKNOWN INDICATION
     Route: 065
  10. PAN 40 [Concomitant]
     Indication: DRUG USE FOR UNKNOWN INDICATION
     Route: 065
  11. DOXACARD [Concomitant]
     Indication: DRUG USE FOR UNKNOWN INDICATION
     Route: 065

REACTIONS (2)
  - CARDIAC ARREST [None]
  - PERITONITIS [None]
